FAERS Safety Report 7125432-2 (Version None)
Quarter: 2010Q4

REPORT INFORMATION
  Report Type: 
  Country: None (occurrence: None)
  Receive Date: 20101129
  Receipt Date: 20101109
  Transmission Date: 20110411
  Serious: Yes (Hospitalization, Other)
  Sender: FDA-Public Use
  Company Number: US-ROCHE-727608

PATIENT
  Sex: Female
  Weight: 67.7 kg

DRUGS (11)
  1. TOCILIZUMAB [Suspect]
     Indication: RHEUMATOID ARTHRITIS
     Dosage: FORM: IV, DATE OF LAST DOSE PRIOR TO SAE: 12 AUGUST 2010.
     Route: 042
     Dates: start: 20060324
  2. TOCILIZUMAB [Suspect]
     Dosage: PATIENT WAS ENROLLED IN STUDY NUMBER WA18063 AND RECEIVED TOCILIZUMAB.
     Route: 042
  3. METHOTREXATE [Concomitant]
     Dates: start: 20060416
  4. FOLIC ACID [Concomitant]
     Dates: start: 20060224
  5. ORTHO TRI-CYCLEN [Concomitant]
  6. FLAXSEED [Concomitant]
     Dates: start: 20060901
  7. VITAMIN E [Concomitant]
     Dates: start: 20060901
  8. COENZYME Q10 [Concomitant]
     Dates: start: 20070711
  9. VITAMIN B COMPLEX [Concomitant]
     Dates: start: 20060901
  10. RITALIN [Concomitant]
     Dates: start: 20060710
  11. AMBIEN [Concomitant]
     Dates: start: 20091102

REACTIONS (2)
  - BIPOLAR DISORDER [None]
  - PARANOIA [None]
